FAERS Safety Report 9366494 (Version 1)
Quarter: 2013Q2

REPORT INFORMATION
  Report Type: Spontaneous
  Country: AU (occurrence: AU)
  Receive Date: 20130625
  Receipt Date: 20130625
  Transmission Date: 20140414
  Serious: Yes (Other)
  Sender: FDA-Public Use
  Company Number: AU-JNJFOC-20130609865

PATIENT
  Age: 72 Year
  Sex: Male

DRUGS (4)
  1. IMODIUM [Suspect]
     Route: 048
  2. IMODIUM [Suspect]
     Indication: COLITIS
     Route: 048
  3. LOPERAMIDE [Suspect]
     Indication: COLITIS
     Route: 065
  4. CRESTOR [Concomitant]
     Route: 065

REACTIONS (3)
  - Blood urine present [Unknown]
  - Platelet count decreased [Unknown]
  - Off label use [Unknown]
